FAERS Safety Report 9800950 (Version 4)
Quarter: 2015Q2

REPORT INFORMATION
  Report Type: Spontaneous
  Country: US (occurrence: US)
  Receive Date: 20140107
  Receipt Date: 20150609
  Transmission Date: 20150821
  Serious: Yes (Hospitalization, Disabling, Other)
  Sender: FDA-Public Use
  Company Number: US-BEH-2011030462

PATIENT
  Age: 11 Year
  Sex: Female
  Weight: 78 kg

DRUGS (36)
  1. PRIVIGEN [Suspect]
     Active Substance: HUMAN IMMUNOGLOBULIN G
     Dosage: 10 GM VIAL; 50 GM DAILY FOR 3 DAYS EVERY MONTH; 0.5 MG/KG/MIN. INCREASING TO RATE OF 8 MG/KG/MIN
     Route: 042
  2. PRIVIGEN [Suspect]
     Active Substance: HUMAN IMMUNOGLOBULIN G
     Dosage: 20 VIAL; 50 GM DAILY FOR 3 DAYS EVERY MONTH; 0.5 MG/KG/MIN. INCREASING TO RATE OF 8 MG/KG/MIN
     Route: 042
  3. FAMOTIDINE. [Concomitant]
     Active Substance: FAMOTIDINE
  4. BENADRYL [Concomitant]
     Active Substance: DIPHENHYDRAMINE HYDROCHLORIDE
     Indication: PREMEDICATION
  5. PRIVIGEN [Suspect]
     Active Substance: HUMAN IMMUNOGLOBULIN G
     Dosage: 20 GM VIAL
     Dates: start: 20111102, end: 20111104
  6. PRIVIGEN [Suspect]
     Active Substance: HUMAN IMMUNOGLOBULIN G
     Dosage: DAILY X 3 DAYS EVERY MONTH
  7. MIRALAX [Concomitant]
     Active Substance: POLYETHYLENE GLYCOL 3350
  8. NAPROXEN. [Concomitant]
     Active Substance: NAPROXEN
  9. SODIUM CHLORIDE. [Concomitant]
     Active Substance: SODIUM CHLORIDE
  10. PRIVIGEN [Suspect]
     Active Substance: HUMAN IMMUNOGLOBULIN G
     Indication: OPTIC NEURITIS
     Dosage: 10 GM VIAL
     Dates: start: 20111102, end: 20111104
  11. MAXALT [Concomitant]
     Active Substance: RIZATRIPTAN BENZOATE
  12. MULTIVITAMIN [Concomitant]
     Active Substance: VITAMINS
  13. ACETAMINOPHEN. [Concomitant]
     Active Substance: ACETAMINOPHEN
  14. EPINEPHRINE. [Concomitant]
     Active Substance: EPINEPHRINE
  15. TRONKENDI [Concomitant]
  16. ADDERALL [Concomitant]
     Active Substance: AMPHETAMINE ASPARTATE\AMPHETAMINE SULFATE\DEXTROAMPHETAMINE SACCHARATE\DEXTROAMPHETAMINE SULFATE
  17. OMEPRAZOLE. [Concomitant]
     Active Substance: OMEPRAZOLE
  18. PRIVIGEN [Suspect]
     Active Substance: HUMAN IMMUNOGLOBULIN G
     Dosage: FOR 3 DAYS MONTHLY AT MAX RATE OF 345 ML/HOUR
     Route: 042
     Dates: start: 20120506, end: 20120506
  19. PRIVIGEN [Suspect]
     Active Substance: HUMAN IMMUNOGLOBULIN G
     Dosage: 10 GM; 50 GM DAILY X 3DAYS MONTHLY
     Route: 042
  20. PRIVIGEN [Suspect]
     Active Substance: HUMAN IMMUNOGLOBULIN G
     Dosage: 20 GM;50 GM DAILY X 3DAYS MONTHLY
     Route: 042
  21. IBUPROFEN. [Concomitant]
     Active Substance: IBUPROFEN
  22. DIPHENHYDRAMINE [Concomitant]
     Active Substance: DIPHENHYDRAMINE
     Indication: PREMEDICATION
  23. PRIVIGEN [Suspect]
     Active Substance: HUMAN IMMUNOGLOBULIN G
     Dosage: 3 DAYS EVERY MONTH
     Route: 042
     Dates: start: 20110122
  24. PRIVIGEN [Suspect]
     Active Substance: HUMAN IMMUNOGLOBULIN G
     Dosage: FOR 3 DAYS MONTHLY AT MAX RATE OF 345 ML/HOUR
     Route: 042
     Dates: start: 20120506, end: 20120506
  25. PRIVIGEN [Suspect]
     Active Substance: HUMAN IMMUNOGLOBULIN G
     Dosage: FOR 3 DAYS MONTHLY AT MAX RATE OF 345 ML/HOUR
     Route: 042
     Dates: start: 20120506, end: 20120506
  26. PRIVIGEN [Suspect]
     Active Substance: HUMAN IMMUNOGLOBULIN G
     Dosage: FOR 3 DAYS MONTHLY AT MAX RATE OF 345 ML/HOUR
     Route: 042
     Dates: start: 20120506, end: 20120506
  27. FROVA [Concomitant]
     Active Substance: FROVATRIPTAN SUCCINATE
  28. ALL OTHER THERAPEUTIC PRODUCTS [Concomitant]
     Active Substance: UNSPECIFIED INGREDIENT
  29. ZONEGRAN [Concomitant]
     Active Substance: ZONISAMIDE
  30. LIDOCAINE PRILOCAINE [Concomitant]
     Indication: PREMEDICATION
  31. PRIVIGEN [Suspect]
     Active Substance: HUMAN IMMUNOGLOBULIN G
     Dosage: 20 GM;50 GM DAILY X 3DAYS MONTHLY
     Route: 042
  32. FROVA [Suspect]
     Active Substance: FROVATRIPTAN SUCCINATE
     Indication: MIGRAINE
  33. VITAMIN D3 [Concomitant]
     Active Substance: CHOLECALCIFEROL
  34. PEPCID [Concomitant]
     Active Substance: FAMOTIDINE
  35. HEPARIN [Concomitant]
     Active Substance: HEPARIN SODIUM
  36. SOLU-MEDROL [Concomitant]
     Active Substance: METHYLPREDNISOLONE SODIUM SUCCINATE

REACTIONS (17)
  - Eye pain [Not Recovered/Not Resolved]
  - Photosensitivity reaction [Not Recovered/Not Resolved]
  - Nausea [Unknown]
  - Rhinitis [Recovered/Resolved]
  - Migraine [Not Recovered/Not Resolved]
  - Abdominal discomfort [Unknown]
  - Blindness unilateral [Unknown]
  - Sinusitis [Recovered/Resolved]
  - Catheterisation venous [Recovered/Resolved]
  - Product use issue [Unknown]
  - Headache [Unknown]
  - Headache [Recovered/Resolved]
  - Eye irritation [Recovered/Resolved]
  - Ear infection [Recovered/Resolved]
  - Pharyngitis [Recovered/Resolved]
  - Asthenia [Recovering/Resolving]
  - Eye infection [Recovered/Resolved]

NARRATIVE: CASE EVENT DATE: 20110122
